FAERS Safety Report 5434260-5 (Version None)
Quarter: 2007Q3

REPORT INFORMATION
  Report Type: 
  Country: None (occurrence: None)
  Receive Date: 20070829
  Receipt Date: 20070820
  Transmission Date: 20080115
  Serious: Yes (Death, Hospitalization)
  Sender: FDA-Public Use
  Company Number: 056-C5013-07040465

PATIENT
  Age: 67 Year
  Sex: Female
  Weight: 48 kg

DRUGS (15)
  1. CC-5013 (LENALIDOMIDE) (CAPSULES) [Suspect]
     Indication: MULTIPLE MYELOMA
     Dosage: 25 MG, DAILY, ORAL
     Route: 048
     Dates: start: 20070117, end: 20070207
  2. FERROUS SULFATE TAB [Concomitant]
  3. HYDROCORTISONE [Concomitant]
  4. LASIX [Concomitant]
  5. PLAVIX [Concomitant]
  6. NEXIUM [Concomitant]
  7. TRANXENE [Concomitant]
  8. CLINOMEL N7(CLINOMEL) [Concomitant]
  9. ACUPAN [Concomitant]
  10. PLITICAN (ALIZAPRIDE HYDROCHLORIDE) [Concomitant]
  11. LOVENOX [Concomitant]
  12. BICARBONATE (SODIUM BICARBONATE) [Concomitant]
  13. RANIPLEX (RANITIDINE) [Concomitant]
  14. BIONOLYTE [Concomitant]
  15. FUNGIZONE [Concomitant]

REACTIONS (26)
  - ARTHRITIS [None]
  - ATRIAL FIBRILLATION [None]
  - BEDRIDDEN [None]
  - BLOOD SODIUM INCREASED [None]
  - CARDIAC AMYLOIDOSIS [None]
  - CARDIAC FAILURE [None]
  - DEPENDENCE ON RESPIRATOR [None]
  - DIARRHOEA [None]
  - DISEASE PROGRESSION [None]
  - FACIAL BONES FRACTURE [None]
  - FALL [None]
  - FLUID OVERLOAD [None]
  - GASTROINTESTINAL AMYLOIDOSIS [None]
  - GENERAL PHYSICAL HEALTH DETERIORATION [None]
  - HAEMOGLOBIN DECREASED [None]
  - LIGHT CHAIN ANALYSIS INCREASED [None]
  - MALAISE [None]
  - MALNUTRITION [None]
  - PERICARDIAL EFFUSION [None]
  - PHLEBITIS [None]
  - PLATELET COUNT ABNORMAL [None]
  - PLEURAL EFFUSION [None]
  - PULMONARY EMBOLISM [None]
  - RENAL FAILURE [None]
  - STAPHYLOCOCCAL SEPSIS [None]
  - VOMITING [None]
